FAERS Safety Report 17005374 (Version 1)
Quarter: 2019Q4

REPORT INFORMATION
  Report Type: Spontaneous
  Country: US (occurrence: US)
  Receive Date: 20191107
  Receipt Date: 20191107
  Transmission Date: 20200122
  Serious: No
  Sender: FDA-Public Use
  Company Number: US-TEVA-2019-US-1131003

PATIENT
  Age: 43 Year

DRUGS (4)
  1. CLONAZEPAM SANDOZ, MYLAN, SUN, ACCORD, AND SOLCO [Suspect]
     Active Substance: CLONAZEPAM
     Indication: ANXIETY
     Route: 065
  2. CLONAZEPAM ACTAVIS [Suspect]
     Active Substance: CLONAZEPAM
     Indication: DEPRESSION
  3. CLONAZEPAM ACTAVIS [Suspect]
     Active Substance: CLONAZEPAM
     Indication: ANXIETY
     Route: 065
  4. CLONAZEPAM SANDOZ, MYLAN, SUN, ACCORD, AND SOLCO [Suspect]
     Active Substance: CLONAZEPAM
     Indication: DEPRESSION

REACTIONS (9)
  - Product substitution issue [Unknown]
  - Depression [Unknown]
  - Diarrhoea [Unknown]
  - Anxiety [Unknown]
  - Blepharospasm [Unknown]
  - Withdrawal syndrome [Unknown]
  - Hyperhidrosis [Unknown]
  - Headache [Unknown]
  - Drug ineffective [Unknown]
